FAERS Safety Report 4400999-3 (Version None)
Quarter: 2004Q3

REPORT INFORMATION
  Report Type: 
  Country: None (occurrence: None)
  Receive Date: 20040907
  Receipt Date: 20030912
  Transmission Date: 20050211
  Serious: No
  Sender: FDA-Public Use
  Company Number: US-BRISTOL-MYERS SQUIBB COMPANY-12381695

PATIENT
  Sex: Male
  Weight: 98 kg

DRUGS (9)
  1. COUMADIN [Suspect]
     Indication: THROMBOSIS
     Route: 048
     Dates: start: 20021201
  2. VIRAMUNE [Concomitant]
  3. COMBIVIR [Concomitant]
  4. COLCHICINE [Concomitant]
  5. GLYBURIDE [Concomitant]
  6. TRICOR [Concomitant]
  7. ENALAPRIL MALEATE [Concomitant]
  8. FOLIC ACID [Concomitant]
  9. SEROSTIM [Concomitant]

REACTIONS (2)
  - DIZZINESS [None]
  - INTERNATIONAL NORMALISED RATIO DECREASED [None]
